FAERS Safety Report 17861023 (Version 2)
Quarter: 2020Q2

REPORT INFORMATION
  Report Type: Spontaneous
  Country: HR (occurrence: HR)
  Receive Date: 20200604
  Receipt Date: 20200622
  Transmission Date: 20200714
  Serious: Yes (Other)
  Sender: FDA-Public Use
  Company Number: HR-JNJFOC-20200603005

PATIENT
  Age: 77 Year
  Sex: Male
  Weight: 68 kg

DRUGS (7)
  1. XARELTO [Suspect]
     Active Substance: RIVAROXABAN
     Indication: ATRIAL FIBRILLATION
     Dosage: 15 MG, QD WITH A MEAL
     Route: 048
     Dates: start: 201912
  2. BISOPROLOL [Concomitant]
     Active Substance: BISOPROLOL
     Dosage: 2.5 MG IN THE MORNING
  3. MARTEFARIN [Concomitant]
     Active Substance: WARFARIN
     Dosage: ACCORDING TO INR (REFUSES TO TAKE NOAC)
  4. XARELTO [Suspect]
     Active Substance: RIVAROXABAN
     Indication: NEPHROPATHY
  5. ENOXAPARIN [Concomitant]
     Active Substance: ENOXAPARIN
     Dosage: 40 MG
     Route: 058
  6. INSULIN [Concomitant]
     Active Substance: INSULIN NOS
     Indication: DIABETES MELLITUS
  7. PERINDOPRIL AMLODIPIN MEPHA [Concomitant]
     Dosage: PERINDOPRIL / AMLODIPINE 5/5 MG

REACTIONS (3)
  - Mental disorder [Unknown]
  - Product use complaint [Unknown]
  - General physical health deterioration [Unknown]

NARRATIVE: CASE EVENT DATE: 201912
